FAERS Safety Report 7411835-5 (Version None)
Quarter: 2011Q2

REPORT INFORMATION
  Report Type: 
  Country: None (occurrence: None)
  Receive Date: 20110413
  Receipt Date: 20110404
  Transmission Date: 20111010
  Serious: Yes (Hospitalization)
  Sender: FDA-Public Use
  Company Number: CH-ASTRAZENECA-2011SE03253

PATIENT
  Age: 69 Year
  Sex: Female

DRUGS (11)
  1. SEROQUEL XR [Suspect]
     Route: 048
     Dates: start: 20101228
  2. NOVALGIN [Concomitant]
  3. SEROQUEL XR [Suspect]
     Route: 048
     Dates: start: 20101210, end: 20101227
  4. ORFIRIL [Suspect]
     Route: 048
     Dates: start: 20101210
  5. ATACAND HCT [Suspect]
     Dosage: 16/12.5MG
     Route: 048
     Dates: start: 20100917, end: 20110104
  6. SEROQUEL XR [Suspect]
     Route: 048
     Dates: start: 20101202
  7. CHONDROSULF [Concomitant]
  8. SEROQUEL XR [Suspect]
     Route: 048
     Dates: start: 20101203, end: 20101209
  9. ORFIRIL [Suspect]
     Dosage: 200-300MG
     Route: 048
     Dates: start: 20101203, end: 20101209
  10. SEROQUEL XR [Suspect]
     Indication: BIPOLAR I DISORDER
     Dosage: 100-150 MG DAILY
     Route: 048
     Dates: start: 20100315, end: 20101201
  11. IBEROGAST [Concomitant]

REACTIONS (4)
  - TREATMENT NONCOMPLIANCE [None]
  - HYPONATRAEMIA [None]
  - DISORIENTATION [None]
  - CONFUSIONAL STATE [None]
